FAERS Safety Report 5516827-9 (Version None)
Quarter: 2007Q4

REPORT INFORMATION
  Report Type: 
  Country: None (occurrence: None)
  Receive Date: 20071114
  Receipt Date: 20071108
  Transmission Date: 20080405
  Serious: Yes (Hospitalization)
  Sender: FDA-Public Use
  Company Number: US-AVENTIS-200715888US

PATIENT
  Sex: Male

DRUGS (7)
  1. KETEK [Suspect]
     Indication: SINUSITIS
     Dates: start: 20050711, end: 20050814
  2. SINGULAIR [Concomitant]
  3. PULMICORT [Concomitant]
     Dosage: DOSE: 200 MCQ, 2 PUFFS  BETWEEN 6-8 PM
  4. FORADIL [Concomitant]
     Dosage: DOSE: 12 UG , CRUSH CAP + INHALE
  5. ASTELIN                            /00884002/ [Concomitant]
     Dosage: DOSE: 137 UG EACH NOSTRIL
  6. EPIPEN                             /00003901/ [Concomitant]
  7. TORADOL [Concomitant]
     Dosage: DOSE: 10 Q 4 HOURS

REACTIONS (11)
  - ABDOMINAL PAIN [None]
  - ALANINE AMINOTRANSFERASE INCREASED [None]
  - ASPARTATE AMINOTRANSFERASE INCREASED [None]
  - ASTHENIA [None]
  - FATIGUE [None]
  - GAMMA-GLUTAMYLTRANSFERASE INCREASED [None]
  - HEPATITIS [None]
  - HYPERHIDROSIS [None]
  - NAUSEA [None]
  - PYREXIA [None]
  - VOMITING [None]
